FAERS Safety Report 19991802 (Version 2)
Quarter: 2021Q4

REPORT INFORMATION
  Report Type: Spontaneous
  Country: US (occurrence: US)
  Receive Date: 20211025
  Receipt Date: 20211102
  Transmission Date: 20220304
  Serious: Yes (Other)
  Sender: FDA-Public Use
  Company Number: US-PFIZER INC-2020391331

PATIENT
  Age: 62 Year
  Sex: Female

DRUGS (1)
  1. XELJANZ XR [Suspect]
     Active Substance: TOFACITINIB CITRATE
     Indication: Rheumatoid arthritis
     Dosage: 11 MG, 1X/DAY (SIG: 1 TAB(S) ONCE A DAY 90 DAYS)
     Route: 048

REACTIONS (3)
  - Mycobacterium tuberculosis complex test positive [Unknown]
  - Pain [Unknown]
  - Hypoacusis [Unknown]
